FAERS Safety Report 9315559 (Version 2)
Quarter: 2013Q2

REPORT INFORMATION
  Report Type: Spontaneous
  Country: US (occurrence: US)
  Receive Date: 20130529
  Receipt Date: 20130626
  Transmission Date: 20140414
  Serious: No
  Sender: FDA-Public Use
  Company Number: US-FRI-1000045455

PATIENT
  Age: 58 Year
  Sex: Female

DRUGS (8)
  1. VIIBRYD [Suspect]
     Indication: DEPRESSION
     Dosage: 10 MG
     Route: 048
     Dates: start: 2012
  2. VIIBRYD [Suspect]
     Dosage: 20 MG
     Route: 048
  3. VIIBRYD [Suspect]
     Indication: DEPRESSION
     Dosage: 40 MG
     Route: 048
     Dates: end: 2013
  4. NORVASC [Concomitant]
     Indication: HYPERTENSION
  5. HYDROCHLOROTHIAZIDE [Concomitant]
     Indication: HYPERTENSION
  6. SYNTHROID [Concomitant]
     Indication: GOITRE
  7. LIPITOR [Concomitant]
  8. CLARITIN [Concomitant]

REACTIONS (2)
  - Fibromyalgia [Not Recovered/Not Resolved]
  - Feeling abnormal [Recovered/Resolved]
